FAERS Safety Report 22523396 (Version 1)
Quarter: 2023Q2

REPORT INFORMATION
  Report Type: Spontaneous
  Country: US (occurrence: US)
  Receive Date: 20230606
  Receipt Date: 20230606
  Transmission Date: 20230722
  Serious: No
  Sender: FDA-Public Use
  Company Number: US-BRISTOL-MYERS SQUIBB COMPANY-2023-078792

PATIENT
  Age: 72 Year
  Sex: Female
  Weight: 58.06 kg

DRUGS (1)
  1. INREBIC [Suspect]
     Active Substance: FEDRATINIB HYDROCHLORIDE
     Indication: Polycythaemia vera
     Dosage: FREQ: AS DIRECTED
     Route: 048
     Dates: start: 20230501

REACTIONS (1)
  - Hypersensitivity [Unknown]
